FAERS Safety Report 8461609-1 (Version None)
Quarter: 2012Q2

REPORT INFORMATION
  Report Type: 
  Country: None (occurrence: None)
  Receive Date: 20120323
  Receipt Date: 20111205
  Transmission Date: 20120825
  Serious: Yes (Disabling)
  Sender: FDA-Public Use
  Company Number: 163-21880-11100918

PATIENT
  Age: 86 Year
  Sex: Male

DRUGS (12)
  1. REVLIMID [Suspect]
     Indication: MULTIPLE MYELOMA
     Dosage: 15 MG, 1 IN 1 D, PO 5 MG, THREE TIMES WEEKLY, PO
     Route: 048
     Dates: start: 20111005
  2. REVLIMID [Suspect]
     Indication: MULTIPLE MYELOMA
     Dosage: 15 MG, 1 IN 1 D, PO 5 MG, THREE TIMES WEEKLY, PO
     Route: 048
     Dates: start: 20110323, end: 20111001
  3. DEXAMETHASONE [Concomitant]
  4. ZOCOR (SIMVASTATIN) (UNKNOWN) [Concomitant]
  5. TERAZOSIN (TERAZOSIN) (UNKNOWN) [Concomitant]
  6. GABAPENTIN [Concomitant]
  7. TOPROL-XL [Concomitant]
  8. OMEPRAZOLE [Concomitant]
  9. ASPIRIN [Concomitant]
  10. NEURONTIN [Concomitant]
  11. CYMBALTA [Concomitant]
  12. NAMENDA (MEMANTINE HYDROCHLORIDE) (UNKNOWN) [Concomitant]

REACTIONS (4)
  - FATIGUE [None]
  - RENAL IMPAIRMENT [None]
  - NEUROPATHY PERIPHERAL [None]
  - LETHARGY [None]
